FAERS Safety Report 14259635 (Version 1)
Quarter: 2017Q4

REPORT INFORMATION
  Report Type: Spontaneous
  Country: CN (occurrence: CN)
  Receive Date: 20171207
  Receipt Date: 20171207
  Transmission Date: 20180321
  Serious: Yes (Hospitalization)
  Sender: FDA-Public Use
  Company Number: CN-BAYER-2017-232828

PATIENT
  Age: 47 Year
  Sex: Male
  Weight: 61 kg

DRUGS (3)
  1. HERBAL LAXATIVE [Concomitant]
     Indication: CHEST PAIN
     Dosage: 6 G, TID
     Route: 048
     Dates: start: 20170929, end: 20170929
  2. HERBAL LAXATIVE [Concomitant]
     Indication: DYSGEUSIA
  3. BAYASPIRIN 100 MG [Suspect]
     Active Substance: ASPIRIN
     Indication: THROMBOSIS PROPHYLAXIS
     Dosage: 100 MG, QD
     Route: 048
     Dates: start: 20170929, end: 20171002

REACTIONS (2)
  - Flatulence [Recovered/Resolved]
  - Chest pain [Recovered/Resolved]

NARRATIVE: CASE EVENT DATE: 20170930
